FAERS Safety Report 19774522 (Version 1)
Quarter: 2021Q3

REPORT INFORMATION
  Report Type: Spontaneous
  Country: PL (occurrence: PL)
  Receive Date: 20210901
  Receipt Date: 20210901
  Transmission Date: 20211014
  Serious: Yes (Hospitalization)
  Sender: FDA-Public Use
  Company Number: PL-BIOGEN-2021BI01044279

PATIENT
  Age: 18 Year
  Sex: Female

DRUGS (3)
  1. TECFIDERA [Suspect]
     Active Substance: DIMETHYL FUMARATE
     Indication: MULTIPLE SCLEROSIS
     Route: 065
     Dates: start: 201903
  2. INTERFERON [Concomitant]
     Active Substance: INTERFERON
     Indication: PRODUCT USED FOR UNKNOWN INDICATION
     Route: 065
     Dates: start: 201709
  3. LEVETIRACETAM. [Concomitant]
     Active Substance: LEVETIRACETAM
     Indication: EPILEPSY
     Route: 065

REACTIONS (13)
  - Central nervous system lesion [Unknown]
  - Oral administration complication [Unknown]
  - Multiple sclerosis relapse [Unknown]
  - Demyelination [Unknown]
  - Ataxia [Unknown]
  - Infection [Unknown]
  - Hemiparesis [Unknown]
  - Dysphagia [Unknown]
  - Balance disorder [Unknown]
  - Imaging procedure abnormal [Unknown]
  - Paresis [Unknown]
  - VIIth nerve injury [Unknown]
  - Aphasia [Unknown]

NARRATIVE: CASE EVENT DATE: 20210205
